FAERS Safety Report 9535387 (Version 3)
Quarter: 2013Q4

REPORT INFORMATION
  Report Type: Spontaneous
  Country: US (occurrence: US)
  Receive Date: 20130918
  Receipt Date: 20131018
  Transmission Date: 20140711
  Serious: Yes (Hospitalization, Other)
  Sender: FDA-Public Use
  Company Number: US-009507513-1309USA005135

PATIENT
  Age: 37 Year
  Sex: Female
  Weight: 62.13 kg

DRUGS (13)
  1. NUVARING [Suspect]
     Indication: CONTRACEPTION
     Dosage: 0.015/0.12/ THREE WEEKS IN, ONE WEEK OUT
     Route: 067
  2. NUVARING [Suspect]
     Indication: MENSTRUATION IRREGULAR
  3. MYCOPHENOLATE SODIUM [Concomitant]
  4. PROGRAF [Concomitant]
  5. FUROSEMIDE [Concomitant]
     Route: 048
  6. SPIRONOLACTONE [Concomitant]
  7. OS-CAL (CALCIUM CARBONATE) [Concomitant]
  8. MAGNESIUM OXIDE [Concomitant]
  9. FERROUS SULFATE [Concomitant]
  10. ZETIA [Concomitant]
     Route: 048
  11. LORAZEPAM [Concomitant]
  12. LEXAPRO [Concomitant]
  13. PENTAMIDINE MESYLATE [Concomitant]

REACTIONS (2)
  - Fungaemia [Recovered/Resolved]
  - Device expulsion [Unknown]
